APPROVED DRUG PRODUCT: ZONISAMIDE
Active Ingredient: ZONISAMIDE
Strength: 25MG
Dosage Form/Route: CAPSULE;ORAL
Application: A077625 | Product #001 | TE Code: AB
Applicant: ZYDUS LIFESCIENCES LTD
Approved: Oct 16, 2006 | RLD: No | RS: No | Type: RX